FAERS Safety Report 5913358-9 (Version None)
Quarter: 2008Q4

REPORT INFORMATION
  Report Type: 
  Country: None (occurrence: None)
  Receive Date: 20081009
  Receipt Date: 20080930
  Transmission Date: 20090506
  Serious: Yes (Other)
  Sender: FDA-Public Use
  Company Number: PHEH2008US08494

PATIENT

DRUGS (34)
  1. RECLAST [Suspect]
     Dosage: UNK
     Dates: start: 20080423
  2. ALLEGRA [Concomitant]
     Dosage: 180 MG, QD
     Route: 048
  3. PULMICORT-100 [Concomitant]
     Dosage: 40 MG, 2 PUFFS QD
  4. ALBUTEROL [Concomitant]
     Dosage: 40 MG, 2 PUFFS QD
     Dates: end: 20080506
  5. ALBUTEROL [Concomitant]
     Dosage: 40 MG, 2 PUFFS BID
     Dates: start: 20080506
  6. NASONEX [Concomitant]
     Dosage: 50 MG, 2 SPRAYS QD
  7. PREVACID [Concomitant]
     Dosage: 30 MG, QD
     Route: 048
     Dates: end: 20080506
  8. FUROSEMIDE [Concomitant]
     Dosage: 20 MG, TID
     Dates: end: 20080506
  9. FUROSEMIDE [Concomitant]
     Dosage: 10 MG, QOD
     Dates: start: 20080506
  10. FEXOFENADINE HYDROCHLORIDE [Concomitant]
     Dosage: 100 MG, QD
  11. LOTREL [Concomitant]
     Dosage: 10 MG AML, 20 MG BEN, QD
     Dates: end: 20080506
  12. METFORMIN HCL [Concomitant]
     Dosage: 500 MG, BID
     Dates: end: 20080506
  13. GLYBURIDE [Concomitant]
     Dosage: UNK
  14. POTASSIUM CHLORIDE [Concomitant]
     Dosage: 10 MEQ, QD
  15. POTASSIUM CHLORIDE [Concomitant]
     Dosage: 20 MEQ, BID
  16. POTASSIUM CHLORIDE [Concomitant]
     Dosage: 20 MEQ QAM, 10 MEQ QPM
  17. COLCHICINE [Concomitant]
     Dosage: 6 MG, UNK
  18. ALLOPURINOL [Concomitant]
     Dosage: 300 MG, UNK
  19. LOVASTATIN [Concomitant]
     Dosage: UNK
  20. TRAMADOL HCL [Concomitant]
     Dosage: 50 MG, Q4H PRN
  21. HYDROCODONE BITARTRATE [Concomitant]
     Dosage: 5/500 1-2 TABS PRN
  22. CYCLOBENZAPRINE HCL [Concomitant]
     Dosage: 10 MG, QHS PRN
  23. DARVOCET-N 100 [Concomitant]
     Dosage: 100 MG, PRN
  24. DOXEPIN HCL [Concomitant]
     Dosage: 25 MG, 1-2 TABS PRN
  25. CENTRUM [Concomitant]
     Dosage: 1 QD
     Route: 048
  26. GLUCOSAMINE [Concomitant]
     Dosage: 1 QD
     Route: 048
  27. ASPIRIN [Concomitant]
     Dosage: 1 QD
     Route: 048
  28. FIBER THERAPY [Concomitant]
     Dosage: UNK
  29. MUCINEX [Concomitant]
     Dosage: #2 BID
  30. CALCIUM PHOSPHATE [Concomitant]
     Dosage: UNK
  31. VITAMIN D [Concomitant]
     Dosage: 1000 MG BID
  32. DICYCLOMINE [Concomitant]
     Dosage: 20 MG, BID PRN
  33. LYRICA [Concomitant]
     Dosage: 50 MG, TID
  34. FLONASE [Concomitant]

REACTIONS (9)
  - ARRHYTHMIA [None]
  - ASTHMA [None]
  - BLOOD CREATININE INCREASED [None]
  - BLOOD UREA INCREASED [None]
  - GLYCOSYLATED HAEMOGLOBIN INCREASED [None]
  - HYPOKALAEMIA [None]
  - MALAISE [None]
  - RENAL FAILURE ACUTE [None]
  - WEIGHT DECREASED [None]
